FAERS Safety Report 4842424-4 (Version None)
Quarter: 2005Q4

REPORT INFORMATION
  Report Type: 
  Country: None (occurrence: None)
  Receive Date: 20051125
  Receipt Date: 20051110
  Transmission Date: 20060501
  Serious: Yes (Hospitalization)
  Sender: FDA-Public Use
  Company Number: BR200511000860

PATIENT
  Age: 88 Year
  Sex: Male
  Weight: 68 kg

DRUGS (2)
  1. FORTEO [Suspect]
     Indication: OSTEOPOROSIS
     Dosage: 20 UG, DAILY (1/D), SUBCUTANEOUS
     Route: 058
     Dates: start: 20050801
  2. FORTEO PEN (250MCG/ML) (FORTEO PEN 250MCG/ML) (3ML) PEN, DISPOSABLE [Concomitant]

REACTIONS (6)
  - ASTHENIA [None]
  - DYSPHAGIA [None]
  - DYSPNOEA [None]
  - LUNG INFECTION [None]
  - PHARYNGOLARYNGEAL PAIN [None]
  - TONSILLITIS [None]
